FAERS Safety Report 14165925 (Version 2)
Quarter: 2017Q4

REPORT INFORMATION
  Report Type: Report from Study
  Country: TW (occurrence: TW)
  Receive Date: 20171107
  Receipt Date: 20171113
  Transmission Date: 20180321
  Serious: Yes (Other)
  Sender: FDA-Public Use
  Company Number: TW-JNJFOC-20171103112

PATIENT
  Age: 43 Year
  Sex: Male
  Weight: 71.5 kg

DRUGS (13)
  1. STELARA [Suspect]
     Active Substance: USTEKINUMAB
     Indication: PSORIASIS
     Route: 058
     Dates: start: 20140625
  2. BOKEY [Concomitant]
     Route: 048
     Dates: start: 20090722
  3. MOBIC [Concomitant]
     Active Substance: MELOXICAM
     Route: 048
     Dates: start: 20100901
  4. CLINDAMYCIN. [Concomitant]
     Active Substance: CLINDAMYCIN
     Route: 048
     Dates: start: 20171011
  5. SODIUM DIBUNATE [Concomitant]
     Dosage: BID+HS
     Route: 048
     Dates: start: 20170301
  6. FUROSEMIDE. [Concomitant]
     Active Substance: FUROSEMIDE
     Route: 048
     Dates: start: 20170315
  7. SPIRONOLACTONE. [Concomitant]
     Active Substance: SPIRONOLACTONE
     Route: 048
     Dates: start: 20170315
  8. PHYLLOCONTIN [Concomitant]
     Active Substance: AMINOPHYLLINE
     Route: 048
     Dates: start: 20171011
  9. HARNALIDGE [Concomitant]
     Active Substance: TAMSULOSIN HYDROCHLORIDE
     Route: 048
     Dates: start: 20160330
  10. XYZAL [Concomitant]
     Active Substance: LEVOCETIRIZINE DIHYDROCHLORIDE
     Route: 048
     Dates: start: 20150819
  11. LIPITOR [Concomitant]
     Active Substance: ATORVASTATIN CALCIUM
     Route: 048
     Dates: start: 20160330
  12. PREDNISOLONE. [Concomitant]
     Active Substance: PREDNISOLONE
     Route: 048
     Dates: start: 20160818
  13. COZAAR [Concomitant]
     Active Substance: LOSARTAN POTASSIUM
     Route: 048
     Dates: start: 20170315

REACTIONS (1)
  - Acinetobacter infection [Recovered/Resolved]

NARRATIVE: CASE EVENT DATE: 20171019
